FAERS Safety Report 6074164-0 (Version None)
Quarter: 2009Q1

REPORT INFORMATION
  Report Type: 
  Country: None (occurrence: None)
  Receive Date: 20090211
  Receipt Date: 20090202
  Transmission Date: 20090719
  Serious: Yes (Hospitalization, Other)
  Sender: FDA-Public Use
  Company Number: US-CELGENEUS-163-21880-09020089

PATIENT
  Sex: Female

DRUGS (2)
  1. REVLIMID [Suspect]
     Indication: MULTIPLE MYELOMA
     Route: 048
     Dates: start: 20080903, end: 20090121
  2. DEXAMETHASONE TAB [Concomitant]
     Indication: MULTIPLE MYELOMA
     Dosage: UNKNOWN
     Route: 065
     Dates: start: 20080701

REACTIONS (5)
  - ADVERSE DRUG REACTION [None]
  - DIARRHOEA [None]
  - HAEMATOCHEZIA [None]
  - OEDEMA PERIPHERAL [None]
  - TOOTH LOSS [None]
